FAERS Safety Report 23832468 (Version 3)
Quarter: 2024Q2

REPORT INFORMATION
  Report Type: Spontaneous
  Country: US (occurrence: US)
  Receive Date: 20240508
  Receipt Date: 20240611
  Transmission Date: 20240716
  Serious: Yes (Hospitalization, Other)
  Sender: FDA-Public Use
  Company Number: US-SA-SAC20240429001743

PATIENT
  Age: 64 Year
  Sex: Male
  Weight: 91.9 kg

DRUGS (29)
  1. BELUMOSUDIL MESYLATE [Suspect]
     Active Substance: BELUMOSUDIL MESYLATE
     Indication: Chronic graft versus host disease
     Dosage: 200 MG, QD WITH FOOD PRESCIBED
     Route: 048
  2. ACYCLOVIR [Concomitant]
     Active Substance: ACYCLOVIR
     Indication: Antiviral prophylaxis
     Dosage: 800 MG, BID
     Route: 048
     Dates: start: 20230504
  3. DEXAMETHASONE [Concomitant]
     Active Substance: DEXAMETHASONE
     Indication: Graft versus host disease
     Dosage: 2.5 ML, 2-4 TIMES DAILY (SOLUTION/ORAL RINSE)
     Dates: start: 20240119
  4. DEXAMETHASONE [Concomitant]
     Active Substance: DEXAMETHASONE
     Dosage: 10 ML, QID
     Dates: start: 20240103, end: 20240119
  5. FAMOTIDINE [Concomitant]
     Active Substance: FAMOTIDINE
     Indication: Gastrooesophageal reflux prophylaxis
     Dosage: 20 MG, BID
     Route: 048
     Dates: start: 20230217
  6. FOLIC ACID [Concomitant]
     Active Substance: FOLIC ACID
     Indication: Hyperthermia malignant
     Dosage: 1 MG, QD
     Dates: start: 20230721
  7. LEVOTHYROXINE [Concomitant]
     Active Substance: LEVOTHYROXINE\LEVOTHYROXINE SODIUM
     Indication: Hyperthermia malignant
     Dosage: 75 UG, QD
  8. LISINOPRIL [Concomitant]
     Active Substance: LISINOPRIL
     Indication: Hyperthermia malignant
     Dosage: 20 MG, QD
     Route: 048
     Dates: start: 20230217
  9. LORAZEPAM [Concomitant]
     Active Substance: LORAZEPAM
     Indication: Hyperthermia malignant
     Dosage: 0.5 MG, PRN (Q6-8H)
     Route: 048
     Dates: start: 20230327
  10. MEDROL [Concomitant]
     Active Substance: METHYLPREDNISOLONE
     Indication: Graft versus host disease
     Dosage: 40 MG, BID
     Route: 048
     Dates: start: 20240126, end: 20240129
  11. MEDROL [Concomitant]
     Active Substance: METHYLPREDNISOLONE
     Dosage: 40 MG, QD
     Route: 048
     Dates: start: 20240130, end: 20240202
  12. MEDROL [Concomitant]
     Active Substance: METHYLPREDNISOLONE
     Dosage: 24 MG, QD
     Route: 048
     Dates: start: 20240203, end: 20240206
  13. MEDROL [Concomitant]
     Active Substance: METHYLPREDNISOLONE
     Dosage: 24 MG, QOD
     Route: 048
     Dates: start: 20240208, end: 20240214
  14. PENICILLIN V POTASSIUM [Concomitant]
     Active Substance: PENICILLIN V POTASSIUM
     Indication: Antibiotic prophylaxis
     Dosage: 1 G, QD
     Route: 048
     Dates: start: 20240126
  15. PENTAMIDINE [Concomitant]
     Active Substance: PENTAMIDINE
     Indication: Pneumocystis jirovecii pneumonia
     Dosage: 300 MG, QM
     Route: 055
     Dates: start: 20230619
  16. POSACONAZOLE [Concomitant]
     Active Substance: POSACONAZOLE
     Indication: Antifungal prophylaxis
     Dosage: 300 MG, QD
     Dates: start: 20230213
  17. PROGRAF [Concomitant]
     Active Substance: TACROLIMUS
     Indication: Graft versus host disease
     Dosage: 2.5 ML, 2-4 TIMES DAILY (SOLUTION/ORAL RINSE)
     Dates: start: 20240119
  18. REFRESH TEARS [Concomitant]
     Active Substance: CARBOXYMETHYLCELLULOSE SODIUM
     Indication: Hyperthermia malignant
     Dosage: 2 DROP, PRN
     Route: 031
     Dates: start: 20230621
  19. TRAMADOL [Concomitant]
     Active Substance: TRAMADOL\TRAMADOL HYDROCHLORIDE
     Indication: Pain
     Dosage: 50 MG, PRN, Q4-6H
     Route: 048
     Dates: start: 20240205
  20. TRAZODONE [Concomitant]
     Active Substance: TRAZODONE HYDROCHLORIDE
     Indication: Hyperthermia malignant
     Dosage: 200 MG, HS
     Route: 048
     Dates: start: 20231009
  21. RIBAVIRIN [Concomitant]
     Active Substance: RIBAVIRIN
     Dosage: 600 MG, Q8H
     Route: 048
     Dates: start: 20240311, end: 20240320
  22. RIBAVIRIN [Concomitant]
     Active Substance: RIBAVIRIN
     Dosage: 2 G, Q8H
     Route: 055
     Dates: start: 20240422, end: 20240422
  23. ACETAMINOPHEN [Concomitant]
     Active Substance: ACETAMINOPHEN
     Indication: Premedication
     Dosage: 650 MG, QW
     Route: 048
     Dates: start: 20240205, end: 20240226
  24. DIPHENHYDRAMINE [Concomitant]
     Active Substance: DIPHENHYDRAMINE
     Indication: Premedication
     Dosage: 25 MG, QW
     Route: 042
     Dates: start: 20240205, end: 20240226
  25. OMEPRAZOLE [Concomitant]
     Active Substance: DONEPEZIL HYDROCHLORIDE\OMEPRAZOLE\OMEPRAZOLE MAGNESIUM
     Indication: Gastrooesophageal reflux disease
     Dosage: 40 MG, QD
     Route: 048
     Dates: start: 20240325
  26. FORTAZ [Concomitant]
     Active Substance: CEFTAZIDIME SODIUM
  27. ZYVOX [Concomitant]
     Active Substance: LINEZOLID
  28. PHYTONADIONE [Concomitant]
     Active Substance: PHYTONADIONE
     Dosage: 5 MG, 1X
     Route: 048
     Dates: start: 20240422, end: 20240422
  29. FLUTICASONE [Concomitant]
     Active Substance: FLUTICASONE
     Dosage: 100 MG, BID
     Route: 045
     Dates: start: 20240422

REACTIONS (3)
  - Sinusitis [Unknown]
  - Productive cough [Unknown]
  - Pneumonia [Unknown]

NARRATIVE: CASE EVENT DATE: 20240422
